FAERS Safety Report 6391558-4 (Version None)
Quarter: 2009Q4

REPORT INFORMATION
  Report Type: 
  Country: None (occurrence: None)
  Receive Date: 20091005
  Receipt Date: 20090924
  Transmission Date: 20100525
  Serious: Yes (Hospitalization, Other)
  Sender: FDA-Public Use
  Company Number: CHPA2009US19241

PATIENT
  Age: 52 Year
  Sex: Male

DRUGS (1)
  1. ASPIRIN [Suspect]
     Indication: BACK PAIN
     Dosage: 10-20 DF (162-325 MG), QD

REACTIONS (14)
  - ACID BASE BALANCE ABNORMAL [None]
  - ANALGESIC DRUG LEVEL ABOVE THERAPEUTIC [None]
  - BLOOD ALBUMIN DECREASED [None]
  - BLOOD CHLORIDE INCREASED [None]
  - BLOOD CREATININE INCREASED [None]
  - HAEMODIALYSIS [None]
  - HEART RATE INCREASED [None]
  - HYPOKALAEMIA [None]
  - HYPOXIA [None]
  - LUNG INFILTRATION [None]
  - NON-CARDIOGENIC PULMONARY OEDEMA [None]
  - RESPIRATORY RATE INCREASED [None]
  - THERAPEUTIC AGENT TOXICITY [None]
  - WHITE BLOOD CELL COUNT INCREASED [None]
